FAERS Safety Report 11852482 (Version 2)
Quarter: 2016Q1

REPORT INFORMATION
  Report Type: Spontaneous
  Country: US (occurrence: US)
  Receive Date: 20151218
  Receipt Date: 20160108
  Transmission Date: 20160526
  Serious: No
  Sender: FDA-Public Use
  Company Number: US-PFIZER INC-2015450655

PATIENT
  Age: 5 Year
  Sex: Male
  Weight: 23.13 kg

DRUGS (1)
  1. QUILLIVANT XR [Suspect]
     Active Substance: METHYLPHENIDATE HYDROCHLORIDE
     Dosage: UNK

REACTIONS (3)
  - Urinary sediment present [Unknown]
  - Drug administered to patient of inappropriate age [Unknown]
  - Urine abnormality [Unknown]
